FAERS Safety Report 8172815-8 (Version None)
Quarter: 2012Q1

REPORT INFORMATION
  Report Type: 
  Country: None (occurrence: None)
  Receive Date: 20120223
  Receipt Date: 20120206
  Transmission Date: 20120608
  Serious: Yes (Other)
  Sender: FDA-Public Use
  Company Number: 2012P1004326

PATIENT
  Age: 41 Year
  Sex: Female

DRUGS (1)
  1. LAMOTRIGINE [Suspect]
     Indication: BIPOLAR II DISORDER
     Dosage: 25 MG;QD;PO
     Route: 048

REACTIONS (10)
  - OXYGEN SATURATION DECREASED [None]
  - MULTI-ORGAN FAILURE [None]
  - CHILLS [None]
  - ACUTE RESPIRATORY DISTRESS SYNDROME [None]
  - HYPOTENSION [None]
  - NAUSEA [None]
  - VOMITING [None]
  - MALAISE [None]
  - PYREXIA [None]
  - RASH MACULAR [None]
